FAERS Safety Report 21516731 (Version 1)
Quarter: 2022Q4

REPORT INFORMATION
  Report Type: Spontaneous
  Country: AR (occurrence: AR)
  Receive Date: 20221027
  Receipt Date: 20221027
  Transmission Date: 20230112
  Serious: Yes (Other)
  Sender: FDA-Public Use
  Company Number: AR-PFIZER INC-PV202200090695

PATIENT
  Age: 61 Year
  Sex: Female

DRUGS (2)
  1. ENBREL [Suspect]
     Active Substance: ETANERCEPT
     Indication: Psoriatic arthropathy
     Dosage: 25 MILLIGRAM, QWK
     Route: 065
     Dates: start: 20071019
  2. ENBREL [Suspect]
     Active Substance: ETANERCEPT
     Dosage: UNK, 1 DOSE EVERY 15 DAYS
     Route: 065

REACTIONS (6)
  - Herpes virus infection [Not Recovered/Not Resolved]
  - Facial paralysis [Not Recovered/Not Resolved]
  - Visual impairment [Not Recovered/Not Resolved]
  - Pain [Not Recovered/Not Resolved]
  - Off label use [Unknown]
  - Off label use [Unknown]

NARRATIVE: CASE EVENT DATE: 20071019
